FAERS Safety Report 7771642-0 (Version None)
Quarter: 2011Q3

REPORT INFORMATION
  Report Type: 
  Country: None (occurrence: None)
  Receive Date: 20110922
  Receipt Date: 20100810
  Transmission Date: 20111222
  Serious: Yes (Other)
  Sender: FDA-Public Use
  Company Number: US-ASTRAZENECA-2007UW27643

PATIENT
  Age: 7149 Day
  Sex: Female
  Weight: 69.9 kg

DRUGS (8)
  1. INSULIN NOVOLOG [Concomitant]
     Dates: start: 20041023
  2. LORAZEPAM [Concomitant]
     Dosage: 1-2 MG
     Dates: start: 20041023
  3. ACETAMINOPHEN [Concomitant]
     Dates: start: 20020611
  4. SEROQUEL [Suspect]
     Indication: DEPRESSION
     Route: 048
     Dates: start: 20041018
  5. LITHIUM CARBONATE CR [Concomitant]
     Dates: start: 20041023
  6. SEROQUEL [Suspect]
     Route: 048
     Dates: start: 20041001, end: 20070101
  7. SEROQUEL [Suspect]
     Route: 048
     Dates: start: 20041001, end: 20050301
  8. RISPERDAL [Concomitant]
     Indication: DEPRESSION
     Dates: start: 20050421

REACTIONS (8)
  - TYPE 1 DIABETES MELLITUS [None]
  - HYPERLIPIDAEMIA [None]
  - HYPERCHOLESTEROLAEMIA [None]
  - BLOOD CHOLESTEROL INCREASED [None]
  - TYPE 2 DIABETES MELLITUS [None]
  - DIABETES MELLITUS [None]
  - HYPERGLYCAEMIA [None]
  - DIABETIC KETOACIDOSIS [None]
